FAERS Safety Report 8337494 (Version 3)
Quarter: 2013Q2

REPORT INFORMATION
  Report Type: Spontaneous
  Country: US (occurrence: US)
  Receive Date: 20120116
  Receipt Date: 20130529
  Transmission Date: 20140414
  Serious: No
  Sender: FDA-Public Use
  Company Number: US-BIOGENIDEC-2012BI000734

PATIENT
  Age: 33 Year
  Sex: Female

DRUGS (7)
  1. AVONEX [Suspect]
     Indication: MULTIPLE SCLEROSIS
     Route: 030
     Dates: start: 20000106
  2. AVONEX [Suspect]
     Indication: MULTIPLE SCLEROSIS
     Route: 030
     Dates: start: 2003
  3. AVONEX [Suspect]
     Indication: MULTIPLE SCLEROSIS
     Route: 030
     Dates: start: 20130402
  4. PROZAC [Concomitant]
     Indication: DEPRESSION
     Dates: start: 2000, end: 201101
  5. CYMBALTA [Concomitant]
     Indication: DEPRESSION
     Dates: start: 201201
  6. PRILOSEC OTC [Concomitant]
     Indication: PEPTIC ULCER
  7. BIRTH CONTROL (NOS) [Concomitant]
     Indication: CONTRACEPTION
     Route: 048
     Dates: start: 20120110, end: 20120115

REACTIONS (16)
  - Gait disturbance [Not Recovered/Not Resolved]
  - Eye pain [Not Recovered/Not Resolved]
  - Vision blurred [Not Recovered/Not Resolved]
  - Neuralgia [Recovered/Resolved]
  - Local swelling [Unknown]
  - Anxiety [Not Recovered/Not Resolved]
  - Constipation [Recovered/Resolved]
  - Pain in extremity [Recovered/Resolved]
  - Visual impairment [Not Recovered/Not Resolved]
  - Local swelling [Not Recovered/Not Resolved]
  - Paraesthesia [Not Recovered/Not Resolved]
  - Abdominal pain upper [Recovered/Resolved]
  - Eye irritation [Not Recovered/Not Resolved]
  - Ocular hyperaemia [Not Recovered/Not Resolved]
  - Eye swelling [Not Recovered/Not Resolved]
  - Depression [Unknown]
